FAERS Safety Report 16873761 (Version 1)
Quarter: 2019Q4

REPORT INFORMATION
  Report Type: Spontaneous
  Country: US (occurrence: US)
  Receive Date: 20191001
  Receipt Date: 20191001
  Transmission Date: 20200122
  Serious: Yes (Hospitalization, Other)
  Sender: FDA-Public Use
  Company Number: US-MYLANLABS-2019M1090358

PATIENT
  Age: 4 Decade
  Sex: Male

DRUGS (1)
  1. KETAMINE [Suspect]
     Active Substance: KETAMINE
     Indication: PRODUCT USED FOR UNKNOWN INDICATION
     Route: 048

REACTIONS (9)
  - Nystagmus [Recovering/Resolving]
  - Rhabdomyolysis [Recovered/Resolved]
  - Agitation [Recovering/Resolving]
  - Dehydration [Recovering/Resolving]
  - Drug abuse [Recovering/Resolving]
  - Acute kidney injury [Recovering/Resolving]
  - Mental status changes [Recovered/Resolved]
  - Toxicity to various agents [Recovering/Resolving]
  - Hypernatraemia [Recovering/Resolving]
